FAERS Safety Report 7101271-3 (Version None)
Quarter: 2010Q4

REPORT INFORMATION
  Report Type: 
  Country: None (occurrence: None)
  Receive Date: 20101115
  Receipt Date: 20100415
  Transmission Date: 20110411
  Serious: No
  Sender: FDA-Public Use
  Company Number: US-PFIZER INC-2010048158

PATIENT
  Sex: Female

DRUGS (3)
  1. CLEOCIN [Suspect]
     Dosage: UNK
  2. OFLOXACIN [Suspect]
     Dosage: UNK
  3. NASACORT [Suspect]
     Dosage: UNK

REACTIONS (7)
  - DRUG DOSE OMISSION [None]
  - DRY MOUTH [None]
  - EAR DISCOMFORT [None]
  - EAR PAIN [None]
  - SOMNOLENCE [None]
  - THIRST [None]
  - TINNITUS [None]
